FAERS Safety Report 17037600 (Version 2)
Quarter: 2019Q4

REPORT INFORMATION
  Report Type: Spontaneous
  Country: GB (occurrence: GB)
  Receive Date: 20191115
  Receipt Date: 20191212
  Transmission Date: 20200122
  Serious: Yes (Death, Hospitalization, Other)
  Sender: FDA-Public Use
  Company Number: NVSC2019GB036368

PATIENT
  Sex: Male

DRUGS (5)
  1. DABRAFENIB [Suspect]
     Active Substance: DABRAFENIB
     Indication: METASTATIC MALIGNANT MELANOMA
     Dosage: TREATMENT FOR ABOUT 6 WEEK
     Route: 065
     Dates: start: 201909
  2. TRAMETINIB [Suspect]
     Active Substance: TRAMETINIB
     Indication: METASTATIC MALIGNANT MELANOMA
     Dosage: TREATMENT FOR ABOUT 6 WEEK
     Route: 065
     Dates: start: 201909
  3. METHYLPREDNISOLONE. [Suspect]
     Active Substance: METHYLPREDNISOLONE
     Indication: PRODUCT USED FOR UNKNOWN INDICATION
     Dosage: UNK
     Route: 065
  4. TAZOCIN [Suspect]
     Active Substance: PIPERACILLIN SODIUM\TAZOBACTAM SODIUM
     Indication: PRODUCT USED FOR UNKNOWN INDICATION
     Dosage: UNK
     Route: 065
  5. MEROPENEM. [Suspect]
     Active Substance: MEROPENEM
     Indication: PRODUCT USED FOR UNKNOWN INDICATION
     Dosage: UNK
     Route: 065

REACTIONS (11)
  - Tachycardia [Unknown]
  - Hypotension [Unknown]
  - Metastatic malignant melanoma [Fatal]
  - Hepatic function abnormal [Unknown]
  - Renal impairment [Unknown]
  - Sepsis [Fatal]
  - Metastases to central nervous system [Unknown]
  - Hypoxia [Unknown]
  - Renal failure [Fatal]
  - Pyrexia [Unknown]
  - Multiple organ dysfunction syndrome [Unknown]
